FAERS Safety Report 10012639 (Version 1)
Quarter: 2014Q1

REPORT INFORMATION
  Report Type: Report from Study
  Country: BR (occurrence: BR)
  Receive Date: 20140314
  Receipt Date: 20140314
  Transmission Date: 20141002
  Serious: Yes (Other)
  Sender: FDA-Public Use
  Company Number: PHHY2014BR030487

PATIENT
  Sex: Female
  Weight: 70 kg

DRUGS (9)
  1. DIOVAN [Suspect]
     Indication: HYPERTENSION
     Dosage: 1 DF (160MG), AT DINNER
     Route: 048
     Dates: start: 20140106
  2. DIOVAN [Suspect]
     Dosage: 1 DF (160MG), AT DINNER
     Route: 048
  3. SPIRONOLACTONE AND HYDROCHLOROTHIAZIDE [Concomitant]
     Indication: HYPERTENSION
     Dosage: 1 DF (50 MG), UNK
     Dates: start: 20140106
  4. CARDIZEM [Concomitant]
     Indication: HYPERTENSION
     Dosage: 1 DF (30 MG), UNK
     Dates: start: 20140106
  5. ROSUVASTATIN [Concomitant]
     Indication: BLOOD CHOLESTEROL INCREASED
     Dosage: 1 DF (10 MG), UNK
     Dates: start: 20140106
  6. GLIFAGE [Concomitant]
     Indication: BLOOD GLUCOSE INCREASED
     Dosage: 1 DF (500 MG), UNK
     Dates: start: 20140106
  7. FRONTAL [Concomitant]
     Indication: ANXIETY
     Dosage: 1 DF (0.5 MG), UNK
     Dates: start: 20140106
  8. ASPIRINA PREVENT [Concomitant]
     Indication: PROPHYLAXIS
     Dosage: UNK UKN, UNK
     Dates: start: 20140106
  9. CLOPIDOGREL BISULFATE [Concomitant]
     Indication: THROMBOSIS PROPHYLAXIS
     Dosage: UNK UKN, UNK
     Dates: start: 20140106

REACTIONS (8)
  - Infarction [Recovering/Resolving]
  - Venous occlusion [Recovering/Resolving]
  - Cataract [Recovering/Resolving]
  - Visual impairment [Recovering/Resolving]
  - Cardiac disorder [Recovering/Resolving]
  - Glucose tolerance impaired [Recovering/Resolving]
  - Blood pressure fluctuation [Recovering/Resolving]
  - Blood glucose increased [Recovering/Resolving]
